FAERS Safety Report 14544675 (Version 1)
Quarter: 2018Q1

REPORT INFORMATION
  Report Type: Report from Study
  Country: US (occurrence: US)
  Receive Date: 20180217
  Receipt Date: 20180217
  Transmission Date: 20180509
  Serious: Yes (Death, Other)
  Sender: FDA-Public Use
  Company Number: US-CIPLA (EU) LIMITED-2018US04916

PATIENT

DRUGS (1)
  1. IRINOTECAN [Suspect]
     Active Substance: IRINOTECAN
     Indication: COLORECTAL CANCER METASTATIC
     Dosage: UNK, 90 MIN EVERY 21 DAYS
     Route: 042

REACTIONS (2)
  - Neutropenia [Unknown]
  - Sepsis [Fatal]
